FAERS Safety Report 4704582-1 (Version None)
Quarter: 2005Q2

REPORT INFORMATION
  Report Type: 
  Country: None (occurrence: None)
  Receive Date: 20050629
  Receipt Date: 20050518
  Transmission Date: 20051028
  Serious: Yes (Other)
  Sender: FDA-Public Use
  Company Number: 2005077682

PATIENT
  Age: 36 Year
  Sex: Female

DRUGS (3)
  1. DELTACORTRIL     (PREDNISOLONE) [Suspect]
     Indication: URINARY TRACT INFECTION
     Dosage: 4 MG (1 IN W D), ORAL
     Route: 048
     Dates: start: 20050419, end: 20050421
  2. CIPROFLOXACIN HCL [Concomitant]
  3. URISPAS [Concomitant]

REACTIONS (3)
  - CYSTITIS [None]
  - NOCTURIA [None]
  - POLLAKIURIA [None]
